FAERS Safety Report 21944491 (Version 1)
Quarter: 2023Q1

REPORT INFORMATION
  Report Type: Spontaneous
  Country: US (occurrence: US)
  Receive Date: 20230202
  Receipt Date: 20230202
  Transmission Date: 20230417
  Serious: No
  Sender: FDA-Public Use
  Company Number: US-BEH-2023154076

PATIENT
  Age: 18 Month
  Sex: Male

DRUGS (5)
  1. IDELVION [Suspect]
     Active Substance: COAGULATION FACTOR IX RECOMBINANT HUMAN
     Indication: Factor IX deficiency
     Dosage: 801 INTERNATIONAL UNIT, QOW
     Route: 042
     Dates: start: 20220929
  2. IDELVION [Suspect]
     Active Substance: COAGULATION FACTOR IX RECOMBINANT HUMAN
     Indication: Factor IX deficiency
     Dosage: 801 INTERNATIONAL UNIT, QOW
     Route: 042
     Dates: start: 20220929
  3. IDELVION [Suspect]
     Active Substance: COAGULATION FACTOR IX RECOMBINANT HUMAN
     Dosage: 801 INTERNATIONAL UNIT, PRN
     Route: 042
     Dates: start: 20220929
  4. IDELVION [Suspect]
     Active Substance: COAGULATION FACTOR IX RECOMBINANT HUMAN
     Dosage: 801 INTERNATIONAL UNIT, PRN
     Route: 042
     Dates: start: 20220929
  5. NOVOSEVEN [Suspect]
     Active Substance: COAGULATION FACTOR VIIA RECOMBINANT HUMAN
     Dosage: 1 DOSAGE FORM
     Route: 065
     Dates: start: 20230102

REACTIONS (1)
  - Catheter site extravasation [Unknown]

NARRATIVE: CASE EVENT DATE: 20230102
